FAERS Safety Report 7398327-7 (Version None)
Quarter: 2011Q2

REPORT INFORMATION
  Report Type: 
  Country: None (occurrence: None)
  Receive Date: 20110406
  Receipt Date: 20110325
  Transmission Date: 20111010
  Serious: Yes (Hospitalization, Other)
  Sender: FDA-Public Use
  Company Number: US-ELI_LILLY_AND_COMPANY-US201009003345

PATIENT
  Sex: Female
  Weight: 67.1 kg

DRUGS (13)
  1. FORTEO [Suspect]
     Dosage: 20 UG, DAILY (1/D)
  2. VITAMIN B-12 [Concomitant]
     Dosage: UNK, 3/W
  3. DIGOXIN [Concomitant]
     Dosage: UNK, 3/D
  4. COUMADIN [Concomitant]
  5. HYDROCODONE [Concomitant]
     Dosage: UNK, AS NEEDED
  6. FORTEO [Suspect]
     Indication: OSTEOPOROSIS
     Dosage: 20 UG, DAILY (1/D)
     Route: 065
  7. PREDNISONE [Concomitant]
  8. FUROSEMIDE [Concomitant]
  9. VITAMIN D [Concomitant]
     Dosage: UNK, 2/M
  10. PREVACID [Concomitant]
  11. COREG [Concomitant]
  12. ACEON [Concomitant]
  13. POTASSIUM [Concomitant]

REACTIONS (4)
  - FALL [None]
  - GAIT DISTURBANCE [None]
  - HIP FRACTURE [None]
  - NAUSEA [None]
